FAERS Safety Report 21669768 (Version 2)
Quarter: 2022Q4

REPORT INFORMATION
  Report Type: Spontaneous
  Country: IT (occurrence: IT)
  Receive Date: 20221201
  Receipt Date: 20221215
  Transmission Date: 20230113
  Serious: Yes (Other)
  Sender: FDA-Public Use
  Company Number: IT-ORGANON-O2209ITA001887

PATIENT
  Age: 7 Year
  Sex: Male

DRUGS (9)
  1. MONTELUKAST [Suspect]
     Active Substance: MONTELUKAST SODIUM
     Indication: Product used for unknown indication
     Dosage: HALF OF A TABLET
     Route: 048
     Dates: start: 202009
  2. MONTELUKAST [Suspect]
     Active Substance: MONTELUKAST SODIUM
     Dosage: 4 MILLIGRAM
     Route: 048
     Dates: end: 2019
  3. MONTELUKAST [Suspect]
     Active Substance: MONTELUKAST SODIUM
     Dosage: 4 MILLIGRAM
     Route: 048
     Dates: start: 201909, end: 2020
  4. BILASTINE [Suspect]
     Active Substance: BILASTINE
     Indication: Product used for unknown indication
     Dosage: UNK
     Route: 065
     Dates: end: 2019
  5. BILASTINE [Suspect]
     Active Substance: BILASTINE
     Dosage: UNK
     Route: 065
     Dates: start: 201909, end: 2020
  6. BILASTINE [Suspect]
     Active Substance: BILASTINE
     Dosage: UNK
     Route: 065
     Dates: start: 202009
  7. FLUTICASONE PROPIONATE [Suspect]
     Active Substance: FLUTICASONE PROPIONATE
     Indication: Product used for unknown indication
     Dosage: UNK
     Route: 065
     Dates: start: 201909, end: 2020
  8. FLUTICASONE PROPIONATE [Suspect]
     Active Substance: FLUTICASONE PROPIONATE
     Dosage: UNK
     Route: 065
     Dates: start: 202009
  9. FLUTICASONE PROPIONATE [Suspect]
     Active Substance: FLUTICASONE PROPIONATE
     Dosage: UNK
     Route: 065
     Dates: end: 2019

REACTIONS (13)
  - Hallucinations, mixed [Recovering/Resolving]
  - Musculoskeletal stiffness [Recovering/Resolving]
  - Wrong technique in product usage process [Unknown]
  - Eye movement disorder [Recovering/Resolving]
  - Crying [Recovering/Resolving]
  - Abnormal sleep-related event [Recovering/Resolving]
  - Sleep terror [Recovering/Resolving]
  - Staring [Recovering/Resolving]
  - Tic [Recovering/Resolving]
  - Nightmare [Recovering/Resolving]
  - Aggression [Recovering/Resolving]
  - Somnambulism [Recovering/Resolving]
  - Abnormal behaviour [Recovering/Resolving]

NARRATIVE: CASE EVENT DATE: 20200901
